FAERS Safety Report 24020664 (Version 1)
Quarter: 2024Q2

REPORT INFORMATION
  Report Type: Spontaneous
  Country: FR (occurrence: FR)
  Receive Date: 20240627
  Receipt Date: 20240627
  Transmission Date: 20240716
  Serious: Yes (Hospitalization)
  Sender: FDA-Public Use
  Company Number: None

PATIENT
  Age: 27 Year
  Sex: Female
  Weight: 41 kg

DRUGS (3)
  1. CASPOFUNGIN [Suspect]
     Active Substance: CASPOFUNGIN
     Indication: Intervertebral discitis
     Dosage: 150 MILLIGRAM, QD
     Route: 042
     Dates: start: 20240308, end: 20240417
  2. FLUCONAZOLE [Suspect]
     Active Substance: FLUCONAZOLE
     Indication: Intervertebral discitis
     Dosage: 400 MILLIGRAM, QD (400MG/DAY MONDAY + WEDNESDAY + FRIDAY 200MG/DAY TUESDAY + THURSDAY + SATURDAY
     Route: 048
     Dates: start: 20240304
  3. NEFOPAM [Suspect]
     Active Substance: NEFOPAM
     Indication: Back pain
     Dosage: 80 MILLIGRAM, QD
     Route: 042
     Dates: start: 202402, end: 20240402

REACTIONS (2)
  - Partial seizures [Recovered/Resolved]
  - Somnolence [Not Recovered/Not Resolved]

NARRATIVE: CASE EVENT DATE: 20240403
